FAERS Safety Report 19894645 (Version 6)
Quarter: 2022Q2

REPORT INFORMATION
  Report Type: Spontaneous
  Country: FI (occurrence: FI)
  Receive Date: 20210929
  Receipt Date: 20220601
  Transmission Date: 20220721
  Serious: Yes (Other)
  Sender: FDA-Public Use
  Company Number: FI-CELLTRION INC.-2021FI012918

PATIENT

DRUGS (14)
  1. INFLIXIMAB [Suspect]
     Active Substance: INFLIXIMAB
     Indication: Product used for unknown indication
     Dosage: 400 MILLIGRAM, EVERY 8TH WEEKS
     Route: 042
     Dates: start: 20210510
  2. INFLIXIMAB [Suspect]
     Active Substance: INFLIXIMAB
     Dosage: 400 MILLIGRAM, EVERY 8TH WEEKS
     Route: 042
     Dates: start: 20210707
  3. INFLIXIMAB [Suspect]
     Active Substance: INFLIXIMAB
     Dosage: 400 MILLIGRAM, EVERY 8TH WEEKS
     Route: 042
     Dates: start: 20210901
  4. INFLIXIMAB [Suspect]
     Active Substance: INFLIXIMAB
     Dosage: 400 MILLIGRAM, EVERY 8TH WEEKS
     Route: 042
     Dates: start: 20210901
  5. CETIRIZINE HYDROCHLORIDE [Concomitant]
     Active Substance: CETIRIZINE HYDROCHLORIDE
     Dosage: 10 MG IN THE PREVIOUS NIGHT AND IN THE MORNING ON THE DAY OF THE INFUSION
     Route: 065
     Dates: start: 20210510
  6. CETIRIZINE HYDROCHLORIDE [Concomitant]
     Active Substance: CETIRIZINE HYDROCHLORIDE
     Dosage: 10 MG IN THE PREVIOUS NIGHT AND IN THE MORNING ON THE DAY OF THE INFUSION
     Route: 065
     Dates: start: 20210707
  7. CETIRIZINE HYDROCHLORIDE [Concomitant]
     Active Substance: CETIRIZINE HYDROCHLORIDE
     Dosage: 10 MG IN THE PREVIOUS NIGHT AND IN THE MORNING ON THE DAY OF THE INFUSION
     Route: 065
     Dates: start: 20210901
  8. CETIRIZINE HYDROCHLORIDE [Concomitant]
     Active Substance: CETIRIZINE HYDROCHLORIDE
     Dosage: 10 MG ON THE PREVIOUS DAY AND TWO HOURS PRIOR REMSIMA INFUSION WAS GIVEN
     Route: 048
  9. CETIRIZINE HYDROCHLORIDE [Concomitant]
     Active Substance: CETIRIZINE HYDROCHLORIDE
     Dosage: 10 MG (3 DOSAGE FORM)
     Route: 048
  10. PREDNISOLONE [Concomitant]
     Active Substance: PREDNISOLONE
     Dosage: 20 MG (1.5 DOSAGE FORM) IN THE PREVIOUS NIGHT AND IN THE MORNING ON THE DAY OF THE INFUSION
     Route: 065
     Dates: start: 20210510
  11. PREDNISOLONE [Concomitant]
     Active Substance: PREDNISOLONE
     Dosage: 20 MG (1.5 DOSAGE FORM) IN THE PREVIOUS NIGHT AND IN THE MORNING ON THE DAY OF THE INFUSION
     Route: 065
     Dates: start: 20210707
  12. PREDNISOLONE [Concomitant]
     Active Substance: PREDNISOLONE
     Dosage: 20 MG (1.5 DOSAGE FORM) IN THE PREVIOUS NIGHT AND IN THE MORNING ON THE DAY OF THE INFUSION
     Route: 065
     Dates: start: 20210901
  13. PREDNISOLONE [Concomitant]
     Active Substance: PREDNISOLONE
     Dosage: 30 MG
     Route: 065
  14. XELJANZ [Concomitant]
     Active Substance: TOFACITINIB CITRATE
     Indication: Colitis ulcerative

REACTIONS (6)
  - Colitis ulcerative [Unknown]
  - Drug level decreased [Unknown]
  - Rash erythematous [Unknown]
  - Urticaria [Unknown]
  - Rash pruritic [Unknown]
  - Drug ineffective [Unknown]

NARRATIVE: CASE EVENT DATE: 20210701
